FAERS Safety Report 25020369 (Version 1)
Quarter: 2025Q1

REPORT INFORMATION
  Report Type: Spontaneous
  Country: US (occurrence: US)
  Receive Date: 20250227
  Receipt Date: 20250227
  Transmission Date: 20250409
  Serious: No
  Sender: PRIMUS PHARMACEUTICALS
  Company Number: US-PRIMUS-2024-US-025071

PATIENT
  Age: 77 Year
  Sex: Male

DRUGS (1)
  1. SERNIVO [Suspect]
     Active Substance: BETAMETHASONE DIPROPIONATE
     Indication: Rash
     Route: 061
     Dates: start: 20240327, end: 20240429

REACTIONS (4)
  - Swelling face [Unknown]
  - Alopecia [Unknown]
  - Intentional product use issue [Recovered/Resolved]
  - Product administered at inappropriate site [Recovered/Resolved]

NARRATIVE: CASE EVENT DATE: 20240327
